FAERS Safety Report 4863985-5 (Version None)
Quarter: 2005Q4

REPORT INFORMATION
  Report Type: 
  Country: None (occurrence: None)
  Receive Date: 20051222
  Receipt Date: 20051214
  Transmission Date: 20060501
  Serious: Yes (Hospitalization)
  Sender: FDA-Public Use
  Company Number: US-JNJFOC-20050900251

PATIENT
  Sex: Female
  Weight: 88.45 kg

DRUGS (6)
  1. REMICADE [Suspect]
     Indication: COLITIS
     Dosage: PATIENT RECEIVED TWO DOSES
     Route: 042
  2. REMICADE [Suspect]
     Indication: CROHN'S DISEASE
     Dosage: FREQUENCY: EVERY TWO MONTHS.
     Route: 042
  3. ASACOL [Concomitant]
  4. IMURAN [Concomitant]
  5. BENTYL [Concomitant]
  6. PREDNISONE [Concomitant]

REACTIONS (5)
  - ADRENAL INSUFFICIENCY [None]
  - BLOOD PRESSURE ABNORMAL [None]
  - COMPRESSION FRACTURE [None]
  - MALAISE [None]
  - PLEURITIC PAIN [None]
